FAERS Safety Report 18709257 (Version 1)
Quarter: 2021Q1

REPORT INFORMATION
  Report Type: Spontaneous
  Country: GB (occurrence: GB)
  Receive Date: 20210106
  Receipt Date: 20210106
  Transmission Date: 20210419
  Serious: Yes (Other)
  Sender: FDA-Public Use
  Company Number: GB-ANIPHARMA-2020-UK-000303

PATIENT
  Age: 88 Year
  Sex: Female

DRUGS (1)
  1. CANDESARTAN CILEXETIL. [Suspect]
     Active Substance: CANDESARTAN CILEXETIL
     Indication: PRODUCT USED FOR UNKNOWN INDICATION
     Dosage: 8 MG UNK
     Route: 048
     Dates: start: 20061001

REACTIONS (2)
  - Myalgia [Unknown]
  - Tension headache [Recovered/Resolved]

NARRATIVE: CASE EVENT DATE: 20061001
